FAERS Safety Report 23882596 (Version 1)
Quarter: 2024Q2

REPORT INFORMATION
  Report Type: Spontaneous
  Country: PT (occurrence: FR)
  Receive Date: 20240522
  Receipt Date: 20240522
  Transmission Date: 20240716
  Serious: Yes (Other)
  Sender: FDA-Public Use
  Company Number: None

PATIENT

DRUGS (2)
  1. ESLICARBAZEPINE ACETATE [Suspect]
     Active Substance: ESLICARBAZEPINE ACETATE
     Indication: Product used for unknown indication
     Dosage: 800 MILLIGRAM, QD
     Route: 048
     Dates: start: 20240311, end: 20240328
  2. FYCOMPA [Suspect]
     Active Substance: PERAMPANEL
     Indication: Seizure prophylaxis
     Dosage: 2 MILLIGRAM
     Route: 048
     Dates: start: 20240325, end: 20240328

REACTIONS (3)
  - Rash maculo-papular [Recovered/Resolved]
  - Eyelid oedema [Recovered/Resolved]
  - Hyponatraemia [Recovering/Resolving]

NARRATIVE: CASE EVENT DATE: 20240325
